FAERS Safety Report 15191585 (Version 1)
Quarter: 2018Q3

REPORT INFORMATION
  Report Type: Report from Study
  Country: CL (occurrence: CL)
  Receive Date: 20180724
  Receipt Date: 20180724
  Transmission Date: 20181010
  Serious: Yes (Hospitalization)
  Sender: FDA-Public Use
  Company Number: CL-UCBSA-2018031746

PATIENT
  Age: 64 Year
  Sex: Female

DRUGS (4)
  1. ROTIGOTINE [Suspect]
     Active Substance: ROTIGOTINE
     Indication: PARKINSON^S DISEASE
     Dosage: 4 MG, ONCE DAILY (QD)
     Route: 062
     Dates: start: 20180421, end: 20180611
  2. LEVODOPA/BENSERAZIDE [Concomitant]
     Active Substance: BENSERAZIDE\LEVODOPA
     Indication: PARKINSON^S DISEASE
     Dosage: 0.5 DF (200/50), 3X/DAY (TID)
     Route: 048
     Dates: end: 20180509
  3. LEVODOPA/BENSERAZIDE [Concomitant]
     Active Substance: BENSERAZIDE\LEVODOPA
     Dosage: QUATER TABLET (200/50), 3X/DAY (TID)
     Route: 048
     Dates: start: 20180510
  4. CALCIUM +VIT D [Concomitant]
     Active Substance: CALCIUM\VITAMIN D
     Indication: PRODUCT USED FOR UNKNOWN INDICATION
     Dosage: 1 DF, ONCE DAILY (QD)
     Route: 048

REACTIONS (5)
  - Humerus fracture [Recovering/Resolving]
  - Inflammation [Recovering/Resolving]
  - Muscular weakness [Recovering/Resolving]
  - Fall [Recovered/Resolved]
  - Pain [Recovering/Resolving]

NARRATIVE: CASE EVENT DATE: 20180605
